FAERS Safety Report 6839862-7 (Version None)
Quarter: 2010Q3

REPORT INFORMATION
  Report Type: 
  Country: None (occurrence: None)
  Receive Date: 20100708
  Receipt Date: 20100623
  Transmission Date: 20110219
  Serious: Yes (Other)
  Sender: FDA-Public Use
  Company Number: FKO201000255

PATIENT
  Age: 63 Year
  Sex: Female

DRUGS (5)
  1. CYCLOPHOSPHAMIDE [Suspect]
     Indication: B-CELL LYMPHOMA
     Dates: start: 20070801, end: 20071201
  2. DOXORUBICIN (MANUFACTURER UNKNOWN) (DOXORUBICIN HYDROCHLORIDE) (DOXORU [Suspect]
     Indication: B-CELL LYMPHOMA
     Dates: start: 20070801, end: 20071201
  3. RITUXIMAB (RITUXIMAB) (RITUXIMAB) [Concomitant]
  4. VINCRISTINE [Concomitant]
  5. PREDNISONE (PREDNISONE) (PREDNISONE) [Concomitant]

REACTIONS (4)
  - ACUTE HEPATIC FAILURE [None]
  - HEPATIC CIRRHOSIS [None]
  - HEPATIC ENCEPHALOPATHY [None]
  - HEPATITIS B [None]
